FAERS Safety Report 12809671 (Version 1)
Quarter: 2016Q4

REPORT INFORMATION
  Report Type: Spontaneous
  Country: US (occurrence: US)
  Receive Date: 20161005
  Receipt Date: 20161005
  Transmission Date: 20170207
  Serious: No
  Sender: FDA-Public Use
  Company Number: US-B.I. PHARMACEUTICALS,INC./RIDGEFIELD-2016-BI-63067BP

PATIENT
  Sex: Female

DRUGS (1)
  1. GILOTRIF [Suspect]
     Active Substance: AFATINIB
     Indication: PRODUCT USED FOR UNKNOWN INDICATION
     Route: 065

REACTIONS (8)
  - Glossodynia [Unknown]
  - Lip pain [Unknown]
  - Rash pruritic [Unknown]
  - Haemorrhage [Unknown]
  - Hair growth abnormal [Unknown]
  - Diarrhoea [Unknown]
  - Pain in extremity [Unknown]
  - Skin exfoliation [Unknown]
